FAERS Safety Report 11168944 (Version 4)
Quarter: 2018Q4

REPORT INFORMATION
  Report Type: Spontaneous
  Country: US (occurrence: US)
  Receive Date: 20150605
  Receipt Date: 20181029
  Transmission Date: 20190204
  Serious: Yes (Other)
  Sender: FDA-Public Use
  Company Number: US-CIPLA LTD.-2015US04539

PATIENT

DRUGS (16)
  1. ONDANSETRON [Concomitant]
     Active Substance: ONDANSETRON
     Indication: PREMEDICATION
     Dosage: 12 MG, UNK
     Route: 042
  2. IRINOTECAN [Suspect]
     Active Substance: IRINOTECAN
     Indication: PANCREATIC CARCINOMA METASTATIC
     Dosage: 180 MG/M2, BY CONTINUOUS INFUSION OVER 48 HOURS WITHOUT A BOLUS
     Route: 042
     Dates: start: 201311
  3. OXALIPLATIN. [Suspect]
     Active Substance: OXALIPLATIN
     Dosage: 85 MG/M2, SECOND CYCLE
     Route: 042
  4. 5-FU                               /00098801/ [Concomitant]
     Active Substance: FLUOROURACIL
     Dosage: 2400 MG/M2, SECOND CYCLE
     Route: 042
  5. LEUCOVORIN                         /00566701/ [Concomitant]
     Active Substance: LEUCOVORIN
     Indication: PANCREATIC CARCINOMA METASTATIC
     Dosage: 400 MG/M2, BY CONTINUOUS INFUSION OVER 48 HOURS WITHOUT A BOLUS
     Route: 042
     Dates: start: 201311
  6. IRINOTECAN [Suspect]
     Active Substance: IRINOTECAN
     Dosage: 180 MG/M2, SECOND CYCLE
     Route: 042
  7. 5-FU                               /00098801/ [Concomitant]
     Active Substance: FLUOROURACIL
     Indication: PANCREATIC CARCINOMA METASTATIC
     Dosage: 2400 MG/M2, BY CONTINUOUS INFUSION OVER 48 H WITHOUT A BOLUS
     Route: 042
     Dates: start: 201311
  8. 5-FU                               /00098801/ [Concomitant]
     Active Substance: FLUOROURACIL
     Dosage: UNK
     Route: 065
  9. ATROPINE. [Concomitant]
     Active Substance: ATROPINE
     Dosage: 1 MG, UNK (SECOND DOSE)
     Route: 065
  10. LEUCOVORIN                         /00566701/ [Concomitant]
     Active Substance: LEUCOVORIN
     Dosage: 400 MG/M2, SECOND CYCLE
     Route: 042
  11. IRINOTECAN [Suspect]
     Active Substance: IRINOTECAN
     Dosage: UNK
     Route: 065
  12. OXALIPLATIN. [Suspect]
     Active Substance: OXALIPLATIN
     Indication: PANCREATIC CARCINOMA METASTATIC
     Dosage: 85 MG/M2, BY CONTINUOUS INFUSION OVER 2 HOURS
     Route: 042
     Dates: start: 201311
  13. OXALIPLATIN. [Suspect]
     Active Substance: OXALIPLATIN
     Dosage: UNK
     Route: 065
  14. DEXAMETHASONE. [Concomitant]
     Active Substance: DEXAMETHASONE
     Indication: PREMEDICATION
     Dosage: 10 MG, UNK
     Route: 042
  15. LEUCOVORIN                         /00566701/ [Concomitant]
     Active Substance: LEUCOVORIN
     Dosage: UNK
     Route: 065
  16. ATROPINE. [Concomitant]
     Active Substance: ATROPINE
     Indication: PREMEDICATION
     Dosage: 1 MG, UNK (PRIOR TO INFUSION OF IRINOTECAN AND LEUCOVORIN)
     Route: 042

REACTIONS (3)
  - Aphasia [Recovered/Resolved]
  - Asthenia [Recovered/Resolved]
  - Quadriplegia [Recovered/Resolved]
